FAERS Safety Report 6620609-4 (Version None)
Quarter: 2010Q1

REPORT INFORMATION
  Report Type: 
  Country: None (occurrence: None)
  Receive Date: 20100309
  Receipt Date: 20100305
  Transmission Date: 20100710
  Serious: Yes (Life-Threatening, Hospitalization, Other)
  Sender: FDA-Public Use
  Company Number: FR-B.I. PHARMACEUTICALS,INC./RIDGEFIELD-2010-FF-00217FF

PATIENT
  Age: 83 Year
  Sex: Male

DRUGS (5)
  1. MICARDIS [Suspect]
     Route: 048
     Dates: start: 20071201, end: 20091225
  2. LASILIX [Suspect]
     Route: 048
     Dates: start: 20091215, end: 20091225
  3. CARDENSIEL [Concomitant]
  4. PREVISCAN [Concomitant]
  5. EUPRESSYL [Concomitant]

REACTIONS (5)
  - DEHYDRATION [None]
  - FALL [None]
  - GLOBULINS DECREASED [None]
  - RENAL FAILURE ACUTE [None]
  - RHABDOMYOLYSIS [None]
